FAERS Safety Report 7112200-0 (Version None)
Quarter: 2010Q4

REPORT INFORMATION
  Report Type: 
  Country: None (occurrence: None)
  Receive Date: 20101119
  Receipt Date: 20100224
  Transmission Date: 20110411
  Serious: No
  Sender: FDA-Public Use
  Company Number: A0846251A

PATIENT
  Age: 75 Year
  Sex: Male

DRUGS (3)
  1. AVODART [Suspect]
     Dosage: .5MG PER DAY
     Route: 048
  2. METOPROLOL [Concomitant]
  3. WARFARIN SODIUM [Concomitant]

REACTIONS (1)
  - TESTICULAR SWELLING [None]
